FAERS Safety Report 8931630 (Version 2)
Quarter: 2012Q4

REPORT INFORMATION
  Report Type: 
  Country: JP (occurrence: JP)
  Receive Date: 20121128
  Receipt Date: 20121130
  Transmission Date: 20130627
  Serious: Yes (Other)
  Sender: FDA-Public Use
  Company Number: JP-PFIZER INC-2012291641

PATIENT
  Age: 86 Year
  Sex: Male

DRUGS (2)
  1. AMPICILLIN SODIUM W/SULBACTAM SODIUM [Suspect]
     Dosage: UNK
     Route: 042
  2. MOXIFLOXACIN [Suspect]
     Dosage: UNK

REACTIONS (2)
  - Interstitial lung disease [Recovered/Resolved]
  - Drug eruption [Unknown]
